FAERS Safety Report 25107745 (Version 1)
Quarter: 2025Q1

REPORT INFORMATION
  Report Type: Report from Study
  Country: US (occurrence: US)
  Receive Date: 20250322
  Receipt Date: 20250322
  Transmission Date: 20250409
  Serious: Yes (Hospitalization, Other)
  Sender: ABBVIE
  Company Number: US-ABBVIE-6181199

PATIENT
  Sex: Female

DRUGS (1)
  1. RINVOQ [Suspect]
     Active Substance: UPADACITINIB
     Indication: Colitis ulcerative
     Route: 048
     Dates: start: 202412

REACTIONS (4)
  - Renal cancer [Recovering/Resolving]
  - Cellulitis [Unknown]
  - Faecal calprotectin increased [Unknown]
  - Diarrhoea [Unknown]
